FAERS Safety Report 9589073 (Version 1)
Quarter: 2013Q4

REPORT INFORMATION
  Report Type: Spontaneous
  Country: US (occurrence: US)
  Receive Date: 20131003
  Receipt Date: 20131003
  Transmission Date: 20140711
  Serious: No
  Sender: FDA-Public Use
  Company Number: US-AMGEN-USASP2012068436

PATIENT
  Age: 60 Year
  Sex: Female
  Weight: 79.82 kg

DRUGS (11)
  1. ENBREL [Suspect]
     Indication: PRODUCT USED FOR UNKNOWN INDICATION
     Dosage: 50 MG, QWK
     Route: 058
  2. METHOTREXATE [Concomitant]
     Dosage: 2.5 MG, UNK
  3. ALLEGRA [Concomitant]
     Dosage: 60 MG, UNK
  4. PREDNISON [Concomitant]
     Dosage: 1 MG, UNK
  5. LOVAZA [Concomitant]
     Dosage: 1 G, UNK
  6. HYDROCHLOROTH [Concomitant]
     Dosage: 25 MG, UNK
  7. ATENOLOL [Concomitant]
     Dosage: 100 MG, UNK
  8. CALCIUM D                          /00944201/ [Concomitant]
     Dosage: 600 UNK, UNK
  9. METFORMIN [Concomitant]
     Dosage: 500 MG, UNK
  10. NIACIN [Concomitant]
     Dosage: 250 MG, UNK
  11. VITAMIN C                          /00008001/ [Concomitant]
     Dosage: 500 MG, UNK

REACTIONS (2)
  - Drug ineffective [Unknown]
  - Hypotension [Unknown]
